FAERS Safety Report 8559592-3 (Version None)
Quarter: 2012Q3

REPORT INFORMATION
  Report Type: 
  Country: None (occurrence: None)
  Receive Date: 20120802
  Receipt Date: 20120724
  Transmission Date: 20120928
  Serious: Yes (Hospitalization)
  Sender: FDA-Public Use
  Company Number: US-MYLANLABS-2012S1015181

PATIENT
  Sex: Female

DRUGS (2)
  1. FENTANYL [Suspect]
     Dosage: CHANGED Q72H
     Route: 062
     Dates: start: 20120601, end: 20120601
  2. FENTANYL [Suspect]
     Indication: ARTHRALGIA
     Dosage: CHANGED Q72H
     Route: 062
     Dates: start: 20120601

REACTIONS (6)
  - HYPERHIDROSIS [None]
  - WRONG TECHNIQUE IN DRUG USAGE PROCESS [None]
  - OVERDOSE [None]
  - SOMNOLENCE [None]
  - PYREXIA [None]
  - HEART RATE DECREASED [None]
